FAERS Safety Report 15669457 (Version 1)
Quarter: 2018Q4

REPORT INFORMATION
  Report Type: Spontaneous
  Country: US (occurrence: US)
  Receive Date: 20181129
  Receipt Date: 20181129
  Transmission Date: 20190205
  Serious: No
  Sender: FDA-Public Use
  Company Number: US-TEVA-000995

PATIENT
  Sex: Male
  Weight: 88.4 kg

DRUGS (1)
  1. MIRTAZAPINE ORALLY DISINTEGRATING TABLETS 15MG,30MG [Suspect]
     Active Substance: MIRTAZAPINE
     Indication: IRRITABLE BOWEL SYNDROME
     Dosage: 1  DAILY; 1.00 TABLET, QD
     Route: 048
     Dates: start: 20040308

REACTIONS (1)
  - Somnolence [Unknown]

NARRATIVE: CASE EVENT DATE: 20040308
